FAERS Safety Report 20323787 (Version 1)
Quarter: 2022Q1

REPORT INFORMATION
  Report Type: Spontaneous
  Country: US (occurrence: US)
  Receive Date: 20220111
  Receipt Date: 20220111
  Transmission Date: 20220423
  Serious: No
  Sender: FDA-Public Use
  Company Number: US-CELGENE-USA-20220101406

PATIENT
  Sex: Female

DRUGS (1)
  1. ZEPOSIA [Suspect]
     Active Substance: OZANIMOD HYDROCHLORIDE
     Indication: Relapsing multiple sclerosis
     Route: 048
     Dates: start: 20201216

REACTIONS (2)
  - Sciatica [Not Recovered/Not Resolved]
  - Restlessness [Not Recovered/Not Resolved]
